FAERS Safety Report 9106999 (Version 1)
Quarter: 2013Q1

REPORT INFORMATION
  Report Type: Spontaneous
  Country: US (occurrence: US)
  Receive Date: 20130221
  Receipt Date: 20130221
  Transmission Date: 20140127
  Serious: Yes (Hospitalization)
  Sender: FDA-Public Use
  Company Number: US-BAYER-2013-021039

PATIENT
  Age: 38 Year
  Sex: Female
  Weight: 60.32 kg

DRUGS (1)
  1. YAZ [Suspect]
     Dosage: UNK
     Dates: start: 20110602, end: 20120523

REACTIONS (4)
  - Pulmonary embolism [None]
  - Chest pain [None]
  - Dyspnoea [None]
  - Pulmonary infarction [Recovered/Resolved]
